FAERS Safety Report 10433962 (Version 1)
Quarter: 2014Q3

REPORT INFORMATION
  Report Type: Spontaneous
  Country: US (occurrence: US)
  Receive Date: 20140905
  Receipt Date: 20140905
  Transmission Date: 20150326
  Serious: Yes (Other)
  Sender: FDA-Public Use
  Company Number: US-GLAXOSMITHKLINE-A1087260A

PATIENT
  Age: 67 Year
  Sex: Male

DRUGS (4)
  1. BLOOD PRESSURE MEDICATION [Concomitant]
     Active Substance: UNSPECIFIED INGREDIENT
  2. ADVAIR HFA [Suspect]
     Active Substance: FLUTICASONE PROPIONATE\SALMETEROL XINAFOATE
     Indication: EMPHYSEMA
     Dosage: 1PUFF TWICE PER DAY
     Route: 055
     Dates: start: 201108, end: 20140815
  3. SPIRIVA [Concomitant]
     Active Substance: TIOTROPIUM BROMIDE MONOHYDRATE
  4. ACID REFLUX MED. [Concomitant]

REACTIONS (7)
  - Medication error [Unknown]
  - Carpal tunnel decompression [Unknown]
  - Drug ineffective [Recovering/Resolving]
  - Knee arthroplasty [Unknown]
  - Dry mouth [Recovering/Resolving]
  - Dyspnoea [Recovering/Resolving]
  - Off label use [Unknown]
